FAERS Safety Report 10418043 (Version 1)
Quarter: 2014Q3

REPORT INFORMATION
  Report Type: Spontaneous
  Country: US (occurrence: None)
  Receive Date: 20140828
  Receipt Date: 20140828
  Transmission Date: 20150326
  Serious: Yes (Other)
  Sender: FDA-Public Use
  Company Number: None

PATIENT
  Age: 36 Year
  Sex: Male
  Weight: 72.58 kg

DRUGS (1)
  1. DULOXETINE 30MG BID ACTAVIS [Suspect]
     Active Substance: DULOXETINE
     Indication: FIBROMYALGIA
     Route: 048
     Dates: start: 20140103, end: 20140108

REACTIONS (2)
  - Tinnitus [None]
  - Pain [None]

NARRATIVE: CASE EVENT DATE: 20140103
